FAERS Safety Report 10272701 (Version 1)
Quarter: 2014Q2

REPORT INFORMATION
  Report Type: Spontaneous
  Country: US (occurrence: None)
  Receive Date: 20140630
  Receipt Date: 20140630
  Transmission Date: 20141212
  Serious: Yes (Disabling)
  Sender: FDA-Public Use
  Company Number: None

PATIENT
  Age: 70 Year
  Sex: Male
  Weight: 90.72 kg

DRUGS (1)
  1. CIPROFLOXACIN [Suspect]
     Indication: STAPHYLOCOCCAL INFECTION
     Dosage: 2X DAY FOR 10 DAYS TWICE DAILY
     Route: 048
     Dates: start: 20130305, end: 20130311

REACTIONS (3)
  - Dizziness [None]
  - Nausea [None]
  - Hypoaesthesia [None]
